FAERS Safety Report 6528836-1 (Version None)
Quarter: 2009Q4

REPORT INFORMATION
  Report Type: 
  Country: None (occurrence: None)
  Receive Date: 20091223
  Receipt Date: 20091215
  Transmission Date: 20100525
  Serious: Yes (Hospitalization)
  Sender: FDA-Public Use
  Company Number: A-JP2009-31945

PATIENT
  Age: 50 Year
  Sex: Female

DRUGS (1)
  1. TRACLEER [Suspect]
     Indication: PULMONARY ARTERIAL HYPERTENSION
     Dosage: PULMONARY ARTERIAL HYPERTENSION
     Dates: start: 20090101, end: 20090901

REACTIONS (4)
  - HYPERKALAEMIA [None]
  - HYPOPHAGIA [None]
  - RENAL ARTERY STENOSIS [None]
  - RENAL FAILURE [None]
